FAERS Safety Report 18135853 (Version 2)
Quarter: 2020Q3

REPORT INFORMATION
  Report Type: Spontaneous
  Country: FR (occurrence: FR)
  Receive Date: 20200811
  Receipt Date: 20200821
  Transmission Date: 20201103
  Serious: Yes (Other)
  Sender: FDA-Public Use
  Company Number: NVSC2020FR219442

PATIENT
  Age: 54 Year
  Sex: Female

DRUGS (1)
  1. SECUKINUMAB. [Suspect]
     Active Substance: SECUKINUMAB
     Indication: PSORIATIC ARTHROPATHY
     Dosage: UNK
     Route: 065

REACTIONS (6)
  - Psoriasis [Unknown]
  - Vasculitis gastrointestinal [Unknown]
  - Necrosis [Unknown]
  - Cutaneous vasculitis [Unknown]
  - Purpura [Unknown]
  - Diarrhoea [Recovered/Resolved]
